FAERS Safety Report 7153826-8 (Version None)
Quarter: 2010Q4

REPORT INFORMATION
  Report Type: 
  Country: None (occurrence: None)
  Receive Date: 20101213
  Receipt Date: 20101103
  Transmission Date: 20110411
  Serious: No
  Sender: FDA-Public Use
  Company Number: US-ABBOTT-10P-163-0682999-00

PATIENT
  Sex: Female
  Weight: 77.18 kg

DRUGS (6)
  1. MERIDIA [Suspect]
     Indication: OVERWEIGHT
  2. COZAAR [Concomitant]
     Indication: HYPERTENSION
  3. JANUVIA [Concomitant]
     Indication: DIABETES MELLITUS
     Dosage: 50/1000, 2 IN 1 D
  4. LIPITOR [Concomitant]
     Indication: BLOOD CHOLESTEROL INCREASED
  5. ASPIRIN [Concomitant]
     Indication: PRODUCT USED FOR UNKNOWN INDICATION
  6. VIT C [Concomitant]
     Indication: PRODUCT USED FOR UNKNOWN INDICATION

REACTIONS (3)
  - DIZZINESS [None]
  - FEELING JITTERY [None]
  - NAUSEA [None]
